FAERS Safety Report 24590791 (Version 2)
Quarter: 2024Q4

REPORT INFORMATION
  Report Type: Spontaneous
  Country: US (occurrence: US)
  Receive Date: 20241107
  Receipt Date: 20241111
  Transmission Date: 20250114
  Serious: No
  Sender: BAUSCH AND LOMB
  Company Number: US-BAUSCH-BL-2024-016287

PATIENT
  Sex: Male

DRUGS (2)
  1. ELIDEL [Suspect]
     Active Substance: PIMECROLIMUS
     Indication: Eczema
     Route: 061
     Dates: start: 2021
  2. ELIDEL [Suspect]
     Active Substance: PIMECROLIMUS
     Dosage: DRUG RESTARTED
     Route: 061

REACTIONS (9)
  - Eye swelling [Unknown]
  - Dry eye [Unknown]
  - Application site pain [Unknown]
  - Eye irritation [Unknown]
  - Patient dissatisfaction with treatment [Unknown]
  - Accidental exposure to product [Unknown]
  - Product storage error [Unknown]
  - Drug dispensed to wrong patient [Unknown]
  - Product container issue [Unknown]
